FAERS Safety Report 10249502 (Version 2)
Quarter: 2015Q3

REPORT INFORMATION
  Report Type: Spontaneous
  Country: US (occurrence: US)
  Receive Date: 20140620
  Receipt Date: 20150717
  Transmission Date: 20151125
  Serious: Yes (Death, Other)
  Sender: FDA-Public Use
  Company Number: US-SA-2014SA077969

PATIENT
  Age: 80 Year

DRUGS (3)
  1. BABY ASPIRIN [Concomitant]
     Active Substance: ASPIRIN
     Indication: RHEUMATOID ARTHRITIS
     Route: 065
     Dates: start: 20091204, end: 20091220
  2. HEPARIN [Concomitant]
     Active Substance: HEPARIN SODIUM
     Dosage: GIVEN DURING HOSPITALIZATIONS
  3. PLAVIX [Suspect]
     Active Substance: CLOPIDOGREL BISULFATE
     Indication: CARDIOVASCULAR DISORDER
     Route: 048
     Dates: start: 20091204, end: 20091220

REACTIONS (3)
  - Gastrointestinal haemorrhage [Fatal]
  - Haemorrhage [Unknown]
  - Multiple injuries [Unknown]

NARRATIVE: CASE EVENT DATE: 20091221
